FAERS Safety Report 21939846 (Version 1)
Quarter: 2023Q1

REPORT INFORMATION
  Report Type: Report from Study
  Country: US (occurrence: US)
  Receive Date: 20230201
  Receipt Date: 20230201
  Transmission Date: 20230417
  Serious: Yes (Death, Hospitalization)
  Sender: FDA-Public Use
  Company Number: US-EXELIXIS-CABO-22058344

PATIENT
  Age: 49 Year
  Sex: Male

DRUGS (1)
  1. CABOMETYX [Suspect]
     Active Substance: CABOZANTINIB S-MALATE
     Indication: Renal cancer
     Dosage: 40 MG, QD
     Route: 048
     Dates: end: 202211

REACTIONS (10)
  - Gastric ulcer haemorrhage [Unknown]
  - Diarrhoea [Unknown]
  - Ileus [Unknown]
  - End stage renal disease [Unknown]
  - Oesophageal candidiasis [Unknown]
  - Blood pressure decreased [Unknown]
  - Malignant neoplasm progression [Fatal]
  - Anaemia [Unknown]
  - Blood sodium decreased [Unknown]
  - Platelet count decreased [Unknown]

NARRATIVE: CASE EVENT DATE: 20221101
